FAERS Safety Report 9281745 (Version 2)
Quarter: 2013Q2

REPORT INFORMATION
  Report Type: Spontaneous
  Country: US (occurrence: US)
  Receive Date: 20130510
  Receipt Date: 20130629
  Transmission Date: 20140414
  Serious: Yes (Hospitalization, Other)
  Sender: FDA-Public Use
  Company Number: US-B.I. PHARMACEUTICALS,INC./RIDGEFIELD-2013-BI-12881BP

PATIENT
  Age: 78 Year
  Sex: Male
  Weight: 102.97 kg

DRUGS (12)
  1. PRADAXA [Suspect]
     Indication: ANTICOAGULANT THERAPY
     Dosage: 300 MG
     Dates: start: 20110516, end: 20110519
  2. ZOCOR [Concomitant]
     Indication: CORONARY ARTERY DISEASE
     Dosage: 40 MG
     Route: 048
  3. ASPIRIN [Concomitant]
     Dosage: 81 MG
     Route: 048
  4. ADVAIR [Concomitant]
     Indication: CHRONIC OBSTRUCTIVE PULMONARY DISEASE
     Route: 055
  5. COMBIVENT [Concomitant]
     Indication: CHRONIC OBSTRUCTIVE PULMONARY DISEASE
     Dosage: 8 PUF
     Route: 055
  6. ATENOLOL [Concomitant]
     Dosage: 50 MG
     Route: 048
  7. FERROUS SULFATE [Concomitant]
     Dosage: 325 MG
     Route: 048
  8. VICODIN [Concomitant]
     Route: 048
  9. KLONOPIN [Concomitant]
     Route: 048
  10. LASIX [Concomitant]
     Route: 048
  11. LISINOPRIL [Concomitant]
     Route: 048
  12. VIAGRA [Concomitant]
     Route: 048

REACTIONS (4)
  - Upper gastrointestinal haemorrhage [Unknown]
  - Haemorrhagic anaemia [Unknown]
  - Shock haemorrhagic [Recovered/Resolved]
  - Coagulopathy [Unknown]
